FAERS Safety Report 6244300-1 (Version None)
Quarter: 2009Q2

REPORT INFORMATION
  Report Type: 
  Country: None (occurrence: None)
  Receive Date: 20090623
  Receipt Date: 20090615
  Transmission Date: 20091009
  Serious: Yes (Other)
  Sender: FDA-Public Use
  Company Number: GXKR2009KR06905

PATIENT
  Age: 5 Year
  Sex: Male

DRUGS (7)
  1. ETOPOSIDE [Suspect]
     Indication: ACUTE MYELOID LEUKAEMIA
     Dosage: 1600 MG/M^2 (CUMULATIVE DOSES),
  2. DEXAMETHASONE [Suspect]
     Indication: ACUTE MYELOID LEUKAEMIA
  3. CYTARABINE [Suspect]
     Indication: ACUTE MYELOID LEUKAEMIA
  4. CYCLOPHOSPHAMIDE [Suspect]
     Indication: BONE MARROW CONDITIONING REGIMEN
     Dosage: 120 MG/KG (CUMULATIVE DOSES),
  5. TIOGUANINE (TIOGUANINE) [Suspect]
     Indication: ACUTE MYELOID LEUKAEMIA
  6. DAUNORUBICIN HCL [Suspect]
     Indication: ACUTE MYELOID LEUKAEMIA
  7. BUSULFAN (BUSULFAN) [Suspect]
     Indication: BONE MARROW CONDITIONING REGIMEN

REACTIONS (1)
  - MUCOEPIDERMOID CARCINOMA [None]
